FAERS Safety Report 8597903-3 (Version None)
Quarter: 2012Q3

REPORT INFORMATION
  Report Type: 
  Country: None (occurrence: None)
  Receive Date: 20120816
  Receipt Date: 20120606
  Transmission Date: 20120928
  Serious: Yes (Hospitalization, Other)
  Sender: FDA-Public Use
  Company Number: TR-BAYER-2012-056830

PATIENT
  Age: 67 Year
  Sex: Male

DRUGS (4)
  1. CEFUROXIME [Concomitant]
     Dosage: 500 MG, BID
  2. LEVOFLOXACIN [Suspect]
     Indication: PROSTATIC SPECIFIC ANTIGEN INCREASED
     Dosage: 500 MG, UNK
     Route: 048
  3. CIPROFLOXACIN HCL [Suspect]
     Indication: ANTIBIOTIC PROPHYLAXIS
     Dosage: 500 MG, BID
  4. CEFTRIAXONE [Concomitant]
     Dosage: 1 MG, BID

REACTIONS (3)
  - DRUG RESISTANCE [None]
  - ESCHERICHIA INFECTION [None]
  - PROSTATITIS [None]
